FAERS Safety Report 6572222-5 (Version None)
Quarter: 2010Q1

REPORT INFORMATION
  Report Type: 
  Country: None (occurrence: None)
  Receive Date: 20100205
  Receipt Date: 20100127
  Transmission Date: 20100710
  Serious: Yes (Hospitalization, Other)
  Sender: FDA-Public Use
  Company Number: PHHO2009US15557

PATIENT
  Sex: Female
  Weight: 87.2 kg

DRUGS (24)
  1. AFINITOR [Suspect]
     Indication: LEIOMYOSARCOMA
     Dosage: 10 MG / DAY
     Route: 048
     Dates: start: 20091023, end: 20091112
  2. AFINITOR [Suspect]
     Dosage: 10 MG / DAY
     Route: 048
     Dates: start: 20091125, end: 20091213
  3. ATACAND [Concomitant]
  4. ATENOLOL [Concomitant]
  5. ATIVAN [Concomitant]
     Indication: NAUSEA
  6. CLOBETASOL PROPIONATE [Concomitant]
  7. BACTROBAN [Concomitant]
  8. COLDANGIN [Concomitant]
  9. LANTUS [Concomitant]
  10. LISIPROL [Concomitant]
  11. GEMCITABINE [Concomitant]
  12. TAXOTERE [Concomitant]
  13. FLAVOPIRIDOL [Concomitant]
  14. DASATINIB [Concomitant]
  15. LETROZOLE [Concomitant]
  16. COLCHICINE [Concomitant]
  17. METRONIDAZOLE [Concomitant]
  18. INSULIN GLARGINE [Concomitant]
  19. MELOX [Concomitant]
  20. DIPHENHYDRAMINE [Concomitant]
  21. LIDOCAINE [Concomitant]
  22. INSULIN LISPRO [Concomitant]
  23. PRAVASTATIN [Concomitant]
  24. DEXAMETHASONE [Concomitant]

REACTIONS (28)
  - ASCITES [None]
  - ASTHENIA [None]
  - ATELECTASIS [None]
  - AUTOIMMUNE DISORDER [None]
  - BLOOD CREATININE INCREASED [None]
  - BLOOD GLUCOSE DECREASED [None]
  - DEHYDRATION [None]
  - DIARRHOEA [None]
  - DYSGEUSIA [None]
  - DYSPHAGIA [None]
  - FAILURE TO THRIVE [None]
  - GOUT [None]
  - GRAND MAL CONVULSION [None]
  - HYPERGLYCAEMIA [None]
  - HYPOKALAEMIA [None]
  - HYPOPHAGIA [None]
  - MALIGNANT NEOPLASM PROGRESSION [None]
  - METASTASES TO LIVER [None]
  - METASTASES TO LUNG [None]
  - MUCOSAL INFLAMMATION [None]
  - NAUSEA [None]
  - NEUTROPENIA [None]
  - NODULE ON EXTREMITY [None]
  - ORAL PAIN [None]
  - PARONYCHIA [None]
  - PLEURAL EFFUSION [None]
  - PYREXIA [None]
  - TONGUE ULCERATION [None]
